FAERS Safety Report 8249307-0 (Version None)
Quarter: 2012Q1

REPORT INFORMATION
  Report Type: 
  Country: None (occurrence: None)
  Receive Date: 20120321
  Receipt Date: 20120301
  Transmission Date: 20120608
  Serious: No
  Sender: FDA-Public Use
  Company Number: M2012-012

PATIENT
  Age: 46 Year
  Sex: Female

DRUGS (2)
  1. HONEY BEE VENOM 13 1300MCG [Suspect]
     Indication: IMMUNE TOLERANCE INDUCTION
     Dosage: ,MONTHLY,SCIT
     Dates: start: 20080101, end: 20120101
  2. MIXED VESPID,VENOM 13 1300MCG [Suspect]
     Indication: IMMUNE TOLERANCE INDUCTION
     Dosage: , MONTHLY, SCIT
     Dates: start: 20080101, end: 20120101

REACTIONS (6)
  - EXPIRED DRUG ADMINISTERED [None]
  - PULMONARY HYPERTENSION [None]
  - STRESS [None]
  - PRODUCT RECONSTITUTION ISSUE [None]
  - LEFT VENTRICULAR HYPERTROPHY [None]
  - VIRAL INFECTION [None]
